FAERS Safety Report 10079853 (Version 5)
Quarter: 2014Q2

REPORT INFORMATION
  Report Type: Spontaneous
  Country: GB (occurrence: GB)
  Receive Date: 20140415
  Receipt Date: 20140611
  Transmission Date: 20141212
  Serious: Yes (Other)
  Sender: FDA-Public Use
  Company Number: GB-BANPHARM-20142519

PATIENT
  Sex: Female

DRUGS (5)
  1. IBUPROFEN UNKNOWN PRODUCT [Suspect]
     Route: 048
  2. APIXABAN [Suspect]
     Indication: HIP ARTHROPLASTY
  3. METFORMIN HYDROCHLORIDE [Suspect]
     Indication: DIABETES MELLITUS
  4. GENTAMICIN SULFATE [Suspect]
  5. FLUCLOXACILLIN SODIUM [Suspect]

REACTIONS (3)
  - Renal failure [Unknown]
  - Drug interaction [Unknown]
  - Blood pressure decreased [Unknown]
